FAERS Safety Report 9032208 (Version 1)
Quarter: 2013Q1

REPORT INFORMATION
  Report Type: Spontaneous
  Country: US (occurrence: US)
  Receive Date: 20130122
  Receipt Date: 20130122
  Transmission Date: 20140127
  Serious: No
  Sender: FDA-Public Use
  Company Number: US-009507513-1301USA004925

PATIENT
  Sex: Female

DRUGS (3)
  1. ZETIA [Suspect]
     Dosage: UNK, QD
     Dates: start: 201101, end: 201209
  2. COZAAR [Concomitant]
     Dosage: 50 MG, QD
     Dates: start: 2008, end: 201112
  3. PROTONIX [Concomitant]
     Dosage: 40 MG, QD
     Dates: start: 201112

REACTIONS (1)
  - Headache [Recovered/Resolved]
